FAERS Safety Report 17634398 (Version 1)
Quarter: 2020Q2

REPORT INFORMATION
  Report Type: Spontaneous
  Country: IT (occurrence: IT)
  Receive Date: 20200406
  Receipt Date: 20200406
  Transmission Date: 20200713
  Serious: Yes (Hospitalization)
  Sender: FDA-Public Use
  Company Number: NVSC2020IT044965

PATIENT
  Age: 81 Year
  Sex: Female

DRUGS (5)
  1. ASPIRIN. [Suspect]
     Active Substance: ASPIRIN
     Indication: TRANSIENT ISCHAEMIC ATTACK
     Dosage: 100 MG, QD
     Route: 065
  2. METFORMIN [Suspect]
     Active Substance: METFORMIN HYDROCHLORIDE
     Indication: DIABETES MELLITUS
     Dosage: 500 MG, TID
     Route: 065
  3. HYDROCHLOROTHIAZIDE,QUINAPRIL HYDROCHLORIDE [Suspect]
     Active Substance: HYDROCHLOROTHIAZIDE\QUINAPRIL HYDROCHLORIDE
     Indication: HYPERTENSION
     Route: 065
  4. ATORVASTATIN [Suspect]
     Active Substance: ATORVASTATIN
     Indication: TRANSIENT ISCHAEMIC ATTACK
     Dosage: 10 MG, QD
     Route: 065
  5. DIPIRIDAMOL [Suspect]
     Active Substance: DIPYRIDAMOLE
     Indication: CHEST PAIN
     Dosage: UNK (0.84 MG/KG IN 6 MINUTES)
     Route: 042

REACTIONS (4)
  - Chest pain [Unknown]
  - Headache [Unknown]
  - Stress cardiomyopathy [Unknown]
  - Hypertension [Unknown]
